FAERS Safety Report 9563462 (Version 1)
Quarter: 2013Q3

REPORT INFORMATION
  Report Type: Spontaneous
  Country: US (occurrence: None)
  Receive Date: 20130926
  Receipt Date: 20130926
  Transmission Date: 20140515
  Serious: Yes (Other)
  Sender: FDA-Public Use
  Company Number: None

PATIENT
  Age: 12 Year
  Sex: Male
  Weight: 38.56 kg

DRUGS (1)
  1. VYVANSE [Suspect]
     Dosage: VARIES, QD, PO
     Route: 048

REACTIONS (4)
  - Physical assault [None]
  - Anger [None]
  - Homicidal ideation [None]
  - Aggression [None]
